FAERS Safety Report 8582410-4 (Version None)
Quarter: 2012Q3

REPORT INFORMATION
  Report Type: 
  Country: None (occurrence: None)
  Receive Date: 20120809
  Receipt Date: 20120731
  Transmission Date: 20120928
  Serious: Yes (Hospitalization)
  Sender: FDA-Public Use
  Company Number: JP-GLAXOSMITHKLINE-B0807837A

PATIENT
  Age: 68 Year
  Sex: Female
  Weight: 38 kg

DRUGS (11)
  1. KYTRIL [Concomitant]
     Indication: PROPHYLAXIS OF NAUSEA AND VOMITING
     Route: 042
     Dates: start: 20111121, end: 20120123
  2. ZITHROMAX [Concomitant]
     Indication: ANTIBIOTIC THERAPY
     Route: 048
     Dates: start: 20120107, end: 20120107
  3. MINOCYCLINE HCL [Concomitant]
     Indication: ANTIBIOTIC THERAPY
     Route: 042
     Dates: start: 20120115, end: 20120115
  4. LEVOFLOXACIN [Concomitant]
     Indication: ANTIBIOTIC THERAPY
     Route: 048
     Dates: start: 20111215, end: 20111218
  5. ROCEPHIN [Concomitant]
     Indication: ANTIBIOTIC THERAPY
     Route: 042
     Dates: start: 20120105, end: 20120107
  6. DORIPENEM [Concomitant]
     Indication: ANTIBIOTIC THERAPY
     Route: 042
     Dates: start: 20111211, end: 20111214
  7. CLINDAMYCIN HCL [Concomitant]
     Indication: ANTIBIOTIC THERAPY
     Route: 042
     Dates: start: 20120111, end: 20120202
  8. FOSMICIN S [Concomitant]
     Indication: ANTIBIOTIC THERAPY
     Route: 042
     Dates: start: 20120115, end: 20120115
  9. DECADRON PHOSPHATE [Concomitant]
     Indication: PROPHYLAXIS OF NAUSEA AND VOMITING
     Route: 042
     Dates: start: 20111121, end: 20120123
  10. HYCAMTIN [Suspect]
     Indication: OVARIAN CANCER RECURRENT
     Dosage: 1.1MGM2 PER DAY
     Route: 042
     Dates: start: 20111121, end: 20120123
  11. GRAN [Concomitant]
     Route: 042
     Dates: start: 20120105

REACTIONS (7)
  - WHITE BLOOD CELL COUNT DECREASED [None]
  - NEUTROPHIL COUNT DECREASED [None]
  - NAUSEA [None]
  - C-REACTIVE PROTEIN INCREASED [None]
  - RED BLOOD CELL COUNT DECREASED [None]
  - ANAEMIA [None]
  - DECREASED APPETITE [None]
